FAERS Safety Report 5415747-8 (Version None)
Quarter: 2007Q3

REPORT INFORMATION
  Report Type: 
  Country: None (occurrence: None)
  Receive Date: 20070718
  Receipt Date: 20070122
  Transmission Date: 20080115
  Serious: Yes (Hospitalization, Other)
  Sender: FDA-Public Use
  Company Number: 2007006002

PATIENT
  Age: 54 Year
  Sex: Male
  Weight: 90.7 kg

DRUGS (2)
  1. CELEBREX [Suspect]
     Indication: BACK INJURY
     Dosage: 400 MG (200 MG, 2 IN 1 D)
     Dates: start: 20010801, end: 20021201
  2. BEXTRA [Suspect]
     Indication: BACK INJURY
     Dosage: 20 MG (10 MG, 2 IN 1 D)
     Dates: start: 20030101

REACTIONS (2)
  - DEPRESSION [None]
  - MYOCARDIAL INFARCTION [None]
